FAERS Safety Report 12645777 (Version 1)
Quarter: 2016Q3

REPORT INFORMATION
  Report Type: Spontaneous
  Country: US (occurrence: US)
  Receive Date: 20160811
  Receipt Date: 20160811
  Transmission Date: 20161109
  Serious: No
  Sender: FDA-Public Use
  Company Number: US-ENDO PHARMACEUTICALS INC.-2015-004777

PATIENT
  Sex: Female
  Weight: 75.36 kg

DRUGS (2)
  1. PREDNISONE TABLETS 10MG [Suspect]
     Active Substance: PREDNISONE
     Indication: RHEUMATOID ARTHRITIS
     Route: 048
     Dates: start: 1997
  2. TOPAMAX [Concomitant]
     Active Substance: TOPIRAMATE
     Indication: PRODUCT USED FOR UNKNOWN INDICATION

REACTIONS (6)
  - Rheumatoid arthritis [Unknown]
  - Decreased activity [Unknown]
  - Mass [Unknown]
  - Abdominal discomfort [Unknown]
  - Retinal disorder [Unknown]
  - Weight increased [Unknown]
